FAERS Safety Report 6243425-4 (Version None)
Quarter: 2009Q2

REPORT INFORMATION
  Report Type: 
  Country: None (occurrence: None)
  Receive Date: 20090622
  Receipt Date: 20090609
  Transmission Date: 20091009
  Serious: Yes (Other)
  Sender: FDA-Public Use
  Company Number: 2008-01242

PATIENT
  Age: 61 Year
  Sex: Male
  Weight: 91.2 kg

DRUGS (23)
  1. VELCADE [Suspect]
     Indication: MULTIPLE MYELOMA
     Dosage: 2.7 MG, INTRAVENOUS
     Route: 042
     Dates: start: 20080325, end: 20080403
  2. ASPIRIN [Concomitant]
  3. DIGOXIN [Concomitant]
  4. FENTANYL-100 [Concomitant]
  5. FLUOXETINE [Concomitant]
  6. FUROSEMIDE [Concomitant]
  7. GABAPENTIN [Concomitant]
  8. GLYCERYL TRINITRATE (GLYCERYL TRINITRATE) [Concomitant]
  9. LACTULOSE [Concomitant]
  10. LOFEPRAMINE (LOFEPRAMINE) [Concomitant]
  11. METOCLOPRAMIDE [Concomitant]
  12. OMEPRAZOLE [Concomitant]
  13. ACETAMINOPHEN [Concomitant]
  14. PRAVASTATIN [Concomitant]
  15. PROCHLORPERAZINE MALEATE [Concomitant]
  16. RAMIPRIL [Concomitant]
  17. INFLUENZA VACCINE (INFLUENZA VACCINE) [Concomitant]
  18. AMOXICILLIN [Concomitant]
  19. CLARITHROMYCIN [Concomitant]
  20. TRIMETHOPRIM [Concomitant]
  21. DOXYCYCLINE [Concomitant]
  22. SALBUTAMOL (SALBUTAMOL) INHALATION GAS [Concomitant]
  23. DOLASETRON (DOLASETRON) [Concomitant]

REACTIONS (3)
  - DYSKINESIA [None]
  - MUSCLE TWITCHING [None]
  - TIC [None]
